FAERS Safety Report 9527546 (Version 1)
Quarter: 2013Q1

REPORT INFORMATION
  Report Type: Spontaneous
  Country: US (occurrence: None)
  Receive Date: 20130314
  Receipt Date: 20130314
  Transmission Date: 20140127
  Serious: Yes (Other)
  Sender: FDA-Public Use
  Company Number: 1211USA003330

PATIENT
  Age: 58 Year
  Sex: Female

DRUGS (3)
  1. PEGINTRON [Suspect]
     Indication: HEPATITIS C
     Dates: start: 20121102
  2. RIBAVIRIN (RIBAVIRIN) CAPSULE [Suspect]
     Indication: HEPATITIS C
     Dates: start: 20121102
  3. VICTRELIS [Suspect]
     Indication: HEPATITIS C
     Dates: start: 20121130

REACTIONS (6)
  - Renal pain [None]
  - Tachycardia [None]
  - Dyspepsia [None]
  - Pain [None]
  - Liver disorder [None]
  - Abdominal pain [None]
